FAERS Safety Report 5080507-7 (Version None)
Quarter: 2006Q3

REPORT INFORMATION
  Report Type: 
  Country: None (occurrence: None)
  Receive Date: 20060809
  Receipt Date: 20060728
  Transmission Date: 20061208
  Serious: Yes (Other)
  Sender: FDA-Public Use
  Company Number: 14468

PATIENT
  Age: 55 Year
  Sex: Female
  Weight: 80.7 kg

DRUGS (3)
  1. CARBOPLATIN [Suspect]
     Indication: OVARIAN CANCER
     Dosage: 190 MG WEEKLY IV
     Route: 042
     Dates: start: 20060106, end: 20060106
  2. DEXAMETHASONE [Concomitant]
  3. DOLASETRON [Concomitant]

REACTIONS (4)
  - ABDOMINAL PAIN [None]
  - CHEST PAIN [None]
  - FLUSHING [None]
  - ORAL PRURITUS [None]
